FAERS Safety Report 7892325-2 (Version None)
Quarter: 2011Q4

REPORT INFORMATION
  Report Type: 
  Country: None (occurrence: None)
  Receive Date: 20111101
  Receipt Date: 20111018
  Transmission Date: 20120403
  Serious: Yes (Hospitalization, Other)
  Sender: FDA-Public Use
  Company Number: JPI-P-013408

PATIENT
  Age: 49 Year
  Sex: Male
  Weight: 81.6475 kg

DRUGS (7)
  1. CICLESONIDE [Concomitant]
  2. TRIAMCINOLONE ACETONIDE [Concomitant]
  3. XYREM [Suspect]
     Indication: CATAPLEXY
     Dosage: 8 GM (4 GM,2 IN 1 D),ORAL ; 9 GM (4.5 GM,2 IN 1 D),ORAL ; 12 GM (6 GM,2 IN 1 D),ORAL
     Route: 048
     Dates: start: 20110722
  4. XYREM [Suspect]
     Indication: CATAPLEXY
     Dosage: 8 GM (4 GM,2 IN 1 D),ORAL ; 9 GM (4.5 GM,2 IN 1 D),ORAL ; 12 GM (6 GM,2 IN 1 D),ORAL
     Route: 048
     Dates: start: 20070726, end: 20080904
  5. XYREM [Suspect]
     Indication: CATAPLEXY
     Dosage: 8 GM (4 GM,2 IN 1 D),ORAL ; 9 GM (4.5 GM,2 IN 1 D),ORAL ; 12 GM (6 GM,2 IN 1 D),ORAL
     Route: 048
     Dates: start: 20080905
  6. TESTOSTERONE [Suspect]
     Indication: BLOOD TESTOSTERONE DECREASED
     Dosage: (1 DOSAGE FORMS)
     Dates: end: 20101101
  7. AMPHETAMINE DEXTROAMPHETAMINE MIXED SALTS [Concomitant]

REACTIONS (8)
  - AGGRESSION [None]
  - URINARY INCONTINENCE [None]
  - CONDITION AGGRAVATED [None]
  - ABNORMAL BEHAVIOUR [None]
  - DELUSION [None]
  - NARCOLEPSY [None]
  - HALLUCINATION [None]
  - SOMNAMBULISM [None]
